FAERS Safety Report 17478960 (Version 1)
Quarter: 2020Q1

REPORT INFORMATION
  Report Type: Spontaneous
  Country: US (occurrence: US)
  Receive Date: 20200228
  Receipt Date: 20200228
  Transmission Date: 20200409
  Serious: Yes (Life-Threatening, Hospitalization, Other)
  Sender: FDA-Public Use
  Company Number: US-BAYER-2020-033439

PATIENT
  Age: 82 Year
  Sex: Male

DRUGS (1)
  1. ACETYLSALICYLIC ACID [Suspect]
     Active Substance: ASPIRIN

REACTIONS (5)
  - Melaena [None]
  - Labelled drug-drug interaction medication error [None]
  - Dyspnoea [None]
  - Dizziness [None]
  - Duodenal ulcer haemorrhage [None]
